FAERS Safety Report 6364553-9 (Version None)
Quarter: 2009Q3

REPORT INFORMATION
  Report Type: 
  Country: None (occurrence: None)
  Receive Date: 20090919
  Receipt Date: 20090724
  Transmission Date: 20100115
  Serious: No
  Sender: FDA-Public Use
  Company Number: US-ABBOTT-09P-163-0587795-00

PATIENT
  Sex: Female

DRUGS (5)
  1. HUMIRA [Suspect]
     Indication: PSORIASIS
     Dates: start: 20090706
  2. MS CONTIN [Concomitant]
     Indication: BREAKTHROUGH PAIN
  3. MORPHINE SULFATE INJ [Concomitant]
     Indication: BREAKTHROUGH PAIN
     Route: 048
  4. TRAMADOL HCL [Concomitant]
     Indication: BREAKTHROUGH PAIN
  5. LIDODERM [Concomitant]
     Indication: BREAKTHROUGH PAIN
     Dosage: PATCHES

REACTIONS (4)
  - DRY SKIN [None]
  - HERPES ZOSTER [None]
  - OEDEMA PERIPHERAL [None]
  - PAIN [None]
